FAERS Safety Report 20971151 (Version 1)
Quarter: 2022Q2

REPORT INFORMATION
  Report Type: Spontaneous
  Country: US (occurrence: US)
  Receive Date: 20220616
  Receipt Date: 20220616
  Transmission Date: 20220721
  Serious: No
  Sender: FDA-Public Use
  Company Number: US-SA-SAC20220613000322

PATIENT
  Age: 61 Year
  Sex: Female

DRUGS (24)
  1. DUPIXENT [Suspect]
     Active Substance: DUPILUMAB
     Indication: Product used for unknown indication
     Dosage: 300 MG, QOW
     Route: 058
     Dates: start: 20220517
  2. ADVAIR HFA [Concomitant]
     Active Substance: FLUTICASONE PROPIONATE\SALMETEROL XINAFOATE
  3. ALBUTEROL SULFATE [Concomitant]
     Active Substance: ALBUTEROL SULFATE
  4. ALENDRONATE [Concomitant]
     Active Substance: ALENDRONATE SODIUM
  5. BUDESONIDE [Concomitant]
     Active Substance: BUDESONIDE
     Dosage: I MG/2ML
  6. ADRENAL COMPLEX [Concomitant]
  7. CITALOPRAM [Concomitant]
     Active Substance: CITALOPRAM HYDROBROMIDE
  8. CODEINE GUAIFENESIN [Concomitant]
     Active Substance: CODEINE PHOSPHATE\GUAIFENESIN
     Dosage: 10-100/5
  9. EPINEPHRINE [Concomitant]
     Active Substance: EPINEPHRINE
  10. FASENRA [Concomitant]
     Active Substance: BENRALIZUMAB
  11. IMDUR [Concomitant]
     Active Substance: ISOSORBIDE MONONITRATE
  12. IPRATROPIUM [Concomitant]
     Active Substance: IPRATROPIUM
  13. LIPITOR [Concomitant]
     Active Substance: ATORVASTATIN CALCIUM
  14. LISINOPRIL [Concomitant]
     Active Substance: LISINOPRIL
  15. PREDNISONE [Concomitant]
     Active Substance: PREDNISONE
  16. PROAIR HFA [Concomitant]
     Active Substance: ALBUTEROL SULFATE
  17. SOLU-MEDROL [Concomitant]
     Active Substance: METHYLPREDNISOLONE SODIUM SUCCINATE
  18. SYNTHROID [Concomitant]
     Active Substance: LEVOTHYROXINE SODIUM
  19. TIROSINT [Concomitant]
     Active Substance: LEVOTHYROXINE SODIUM
  20. VALSARTAN [Concomitant]
     Active Substance: VALSARTAN
  21. VITAMIN D NOS [Concomitant]
     Active Substance: VITAMIN D NOS
  22. XOPENEX [Concomitant]
     Active Substance: LEVALBUTEROL HYDROCHLORIDE
  23. ZOLPIDEM [Concomitant]
     Active Substance: ZOLPIDEM TARTRATE
  24. METHYLPREDNISOLONE [Concomitant]
     Active Substance: METHYLPREDNISOLONE

REACTIONS (2)
  - Impaired quality of life [Not Recovered/Not Resolved]
  - Arthralgia [Not Recovered/Not Resolved]
